FAERS Safety Report 26180367 (Version 1)
Quarter: 2025Q4

REPORT INFORMATION
  Report Type: Spontaneous
  Country: CN (occurrence: CN)
  Receive Date: 20251219
  Receipt Date: 20251219
  Transmission Date: 20260117
  Serious: Yes (Other)
  Sender: BEIGENE
  Company Number: CN-BEONEMEDICINES-BGN-2025-022464

PATIENT
  Age: 53 Year
  Sex: Female
  Weight: 71.8 kg

DRUGS (6)
  1. TISLELIZUMAB [Suspect]
     Active Substance: TISLELIZUMAB
     Indication: Lung neoplasm malignant
     Dosage: 200 MILLIGRAM D1, Q3WK
     Dates: start: 20251030
  2. TISLELIZUMAB [Suspect]
     Active Substance: TISLELIZUMAB
     Dosage: 200 MILLIGRAM D1, Q3WK
     Route: 041
     Dates: start: 20251030
  3. TISLELIZUMAB [Suspect]
     Active Substance: TISLELIZUMAB
     Dosage: 200 MILLIGRAM D1, Q3WK
     Route: 041
     Dates: start: 20251030
  4. TISLELIZUMAB [Suspect]
     Active Substance: TISLELIZUMAB
     Dosage: 200 MILLIGRAM D1, Q3WK
     Dates: start: 20251030
  5. CISPLATIN [Concomitant]
     Active Substance: CISPLATIN
     Indication: Lung neoplasm malignant
     Dosage: 30 MILLIGRAM D1-2, Q3WK
     Route: 041
     Dates: start: 20251030
  6. CISPLATIN [Concomitant]
     Active Substance: CISPLATIN
     Dosage: 30 MILLIGRAM D1-2, Q3WK
     Dates: start: 20251030

REACTIONS (1)
  - Myelosuppression [Not Recovered/Not Resolved]

NARRATIVE: CASE EVENT DATE: 20251119
